FAERS Safety Report 18454715 (Version 1)
Quarter: 2020Q4

REPORT INFORMATION
  Report Type: Report from Study
  Country: US (occurrence: US)
  Receive Date: 20201102
  Receipt Date: 20201102
  Transmission Date: 20210114
  Serious: Yes (Hospitalization)
  Sender: FDA-Public Use
  Company Number: US-JNJFOC-20201044161

PATIENT
  Age: 41 Year
  Sex: Male

DRUGS (3)
  1. SPRAVATO [Suspect]
     Active Substance: ESKETAMINE
     Indication: DEPRESSION
     Dates: start: 20201012, end: 20201012
  2. SPRAVATO [Suspect]
     Active Substance: ESKETAMINE
     Dates: start: 20201022, end: 20201022
  3. SPRAVATO [Suspect]
     Active Substance: ESKETAMINE
     Dosage: 84MG, 2 TOTAL DOSES
     Dates: start: 20201015, end: 20201019

REACTIONS (2)
  - Suicidal ideation [Not Recovered/Not Resolved]
  - Dissociation [Recovered/Resolved]

NARRATIVE: CASE EVENT DATE: 20201022
